APPROVED DRUG PRODUCT: APIXABAN
Active Ingredient: APIXABAN
Strength: 2.5MG
Dosage Form/Route: TABLET;ORAL
Application: A209845 | Product #001
Applicant: BRECKENRIDGE PHARMACEUTICAL INC
Approved: Jul 26, 2021 | RLD: No | RS: No | Type: DISCN